FAERS Safety Report 10050134 (Version 1)
Quarter: 2014Q2

REPORT INFORMATION
  Report Type: Spontaneous
  Country: US (occurrence: US)
  Receive Date: 20140401
  Receipt Date: 20140401
  Transmission Date: 20141212
  Serious: No
  Sender: FDA-Public Use
  Company Number: US-BAYER-2014-048617

PATIENT
  Age: 83 Year
  Sex: Male
  Weight: 83.9 kg

DRUGS (1)
  1. ALEVE CAPLET [Suspect]
     Indication: ARTHRITIS
     Dosage: 1-2 DF, BID
     Route: 048
     Dates: start: 2013

REACTIONS (2)
  - Incorrect drug administration duration [None]
  - Extra dose administered [None]
